FAERS Safety Report 17849250 (Version 1)
Quarter: 2020Q2

REPORT INFORMATION
  Report Type: Spontaneous
  Country: US (occurrence: US)
  Receive Date: 20200601
  Receipt Date: 20200601
  Transmission Date: 20200714
  Serious: Yes (Life-Threatening, Disabling, Other)
  Sender: FDA-Public Use
  Company Number: None

PATIENT
  Age: 39 Year
  Sex: Male
  Weight: 90 kg

DRUGS (3)
  1. TIANAA [Suspect]
     Active Substance: TIANEPTINE
     Indication: DRUG DEPENDENCE
     Dosage: ?          QUANTITY:1 CAPSULE(S);?
     Route: 048
  2. TIANAA [Suspect]
     Active Substance: TIANEPTINE
     Indication: DEPRESSION
     Dosage: ?          QUANTITY:1 CAPSULE(S);?
     Route: 048
  3. TIANAA [Suspect]
     Active Substance: TIANEPTINE
     Indication: PAIN
     Dosage: ?          QUANTITY:1 CAPSULE(S);?
     Route: 048

REACTIONS (3)
  - Drug abuser [None]
  - Withdrawal syndrome [None]
  - Seizure [None]

NARRATIVE: CASE EVENT DATE: 20200101
